FAERS Safety Report 21148888 (Version 1)
Quarter: 2022Q3

REPORT INFORMATION
  Report Type: Spontaneous
  Country: US (occurrence: None)
  Receive Date: 20220729
  Receipt Date: 20220729
  Transmission Date: 20221027
  Serious: Yes (Life-Threatening)
  Sender: FDA-Public Use
  Company Number: None

PATIENT
  Age: 72 Year
  Sex: Female
  Weight: 71.8 kg

DRUGS (3)
  1. ALTEPLASE [Suspect]
     Active Substance: ALTEPLASE
     Indication: Embolic stroke
     Dosage: OTHER FREQUENCY : ONE TIME ONLY;?
     Route: 042
     Dates: start: 20220720, end: 20220720
  2. ONDANSETRON [Concomitant]
     Active Substance: ONDANSETRON
     Dates: start: 20220720, end: 20220720
  3. HYDRALAZINE HYDROCHLORIDE [Concomitant]
     Active Substance: HYDRALAZINE HYDROCHLORIDE
     Dates: start: 20220720, end: 20220720

REACTIONS (2)
  - Angioedema [None]
  - Vital functions abnormal [None]

NARRATIVE: CASE EVENT DATE: 20220720
